FAERS Safety Report 6274626-7 (Version None)
Quarter: 2009Q3

REPORT INFORMATION
  Report Type: 
  Country: None (occurrence: None)
  Receive Date: 20090717
  Receipt Date: 20090701
  Transmission Date: 20100115
  Serious: Yes (Death)
  Sender: FDA-Public Use
  Company Number: 2008AL010343

PATIENT
  Age: 63 Year
  Sex: Male

DRUGS (14)
  1. DIGOXIN [Suspect]
     Indication: HEART RATE IRREGULAR
     Dosage: 0.125 MG, DAILY; PO
     Route: 048
     Dates: start: 19920101
  2. ADVAIR HFA [Concomitant]
  3. ALBUTEROL [Concomitant]
  4. POTASSIUM CL [Concomitant]
  5. WARFARIN SODIUM [Concomitant]
  6. TERAZOSIN [Concomitant]
  7. ACIPHEX [Concomitant]
  8. ASPIRIN [Concomitant]
  9. LASIX [Concomitant]
  10. COREG [Concomitant]
  11. DILTIAZEM [Concomitant]
  12. NIFEDIPINE [Concomitant]
  13. ZYRTEC [Concomitant]
  14. CARTIA XT [Concomitant]

REACTIONS (16)
  - ARRHYTHMIA [None]
  - ASTHMA [None]
  - ATRIAL FIBRILLATION [None]
  - BLOOD PRESSURE ABNORMAL [None]
  - CARDIAC DISORDER [None]
  - CHEST DISCOMFORT [None]
  - DIZZINESS [None]
  - DYSPNOEA [None]
  - INJURY [None]
  - ISCHAEMIC CARDIOMYOPATHY [None]
  - MUSCLE SPASMS [None]
  - NAUSEA [None]
  - OEDEMA PERIPHERAL [None]
  - PALPITATIONS [None]
  - VENTRICULAR FIBRILLATION [None]
  - VOMITING [None]
